FAERS Safety Report 25585692 (Version 1)
Quarter: 2025Q3

REPORT INFORMATION
  Report Type: Spontaneous
  Country: EU (occurrence: EU)
  Receive Date: 20250721
  Receipt Date: 20250721
  Transmission Date: 20251020
  Serious: Yes (Hospitalization)
  Sender: PFIZER
  Company Number: None

PATIENT
  Age: 70 Year
  Sex: Male
  Weight: 92 kg

DRUGS (5)
  1. DAPTOMYCIN [Suspect]
     Active Substance: DAPTOMYCIN
     Indication: Osteomyelitis
     Dosage: 850 MG, 1X/DAY
     Route: 042
     Dates: start: 20250301, end: 20250306
  2. DOXYCYCLINE [Suspect]
     Active Substance: DOXYCYCLINE
     Indication: Osteomyelitis
     Route: 048
     Dates: start: 20170101, end: 20250228
  3. PIPERACILLIN SODIUM\TAZOBACTAM SODIUM [Concomitant]
     Active Substance: PIPERACILLIN SODIUM\TAZOBACTAM SODIUM
     Indication: Osteomyelitis
     Dosage: 4 G, 3X/DAY
     Route: 042
     Dates: start: 20250305
  4. CIPROFLOXACIN HYDROCHLORIDE [Concomitant]
     Active Substance: CIPROFLOXACIN HYDROCHLORIDE
     Indication: Osteomyelitis
     Route: 065
     Dates: start: 20250305
  5. LINEZOLID [Concomitant]
     Active Substance: LINEZOLID
     Indication: Osteomyelitis
     Route: 065
     Dates: start: 20250307, end: 20250313

REACTIONS (2)
  - Pancreatitis [Recovered/Resolved]
  - Off label use [Unknown]

NARRATIVE: CASE EVENT DATE: 20250307
